FAERS Safety Report 10750755 (Version 1)
Quarter: 2015Q1

REPORT INFORMATION
  Report Type: Spontaneous
  Country: US (occurrence: None)
  Receive Date: 20150128
  Receipt Date: 20150128
  Transmission Date: 20150721
  Serious: Yes (Hospitalization)
  Sender: FDA-Public Use
  Company Number: 2015PAR00001

PATIENT
  Age: 68 Year
  Sex: Female

DRUGS (3)
  1. VANCOMYCIN (VANCOMYCIN) [Suspect]
     Active Substance: VANCOMYCIN
     Indication: INFECTION
  2. TOBRAMYCIN. [Suspect]
     Active Substance: TOBRAMYCIN
  3. DAPTOMYCIN (DAPTOMYCIN) [Concomitant]
     Active Substance: DAPTOMYCIN

REACTIONS (3)
  - Asthenia [None]
  - Decreased appetite [None]
  - Acute kidney injury [None]
